FAERS Safety Report 12650834 (Version 1)
Quarter: 2016Q3

REPORT INFORMATION
  Report Type: Spontaneous
  Country: US (occurrence: None)
  Receive Date: 20160812
  Receipt Date: 20160812
  Transmission Date: 20161109
  Serious: Yes (Other)
  Sender: FDA-Public Use
  Company Number: None

PATIENT
  Age: 66 Year
  Sex: Female
  Weight: 99.79 kg

DRUGS (7)
  1. CELECOXIB CAP 200MG, 200 MG [Suspect]
     Active Substance: CELECOXIB
     Indication: CHRONIC FATIGUE SYNDROME
     Route: 048
     Dates: start: 20160405, end: 20160415
  2. MAGNESIUM [Concomitant]
     Active Substance: MAGNESIUM
  3. MULTI-VITAMIN [Concomitant]
     Active Substance: .ALPHA.-TOCOPHEROL ACETATE, DL-\ASCORBIC ACID\CYANOCOBALAMIN\FLUORIDE ION\FOLIC ACID\NIACIN\PYRIDOXINE\RIBOFLAVIN\THIAMINE\VITAMIN A\VITAMIN D
  4. CELECOXIB, 200 MG [Suspect]
     Active Substance: CELECOXIB
     Indication: CHRONIC FATIGUE SYNDROME
     Route: 048
     Dates: start: 20160330, end: 20160405
  5. CELECOXIB, 200 MG [Suspect]
     Active Substance: CELECOXIB
     Indication: PAIN
     Route: 048
     Dates: start: 20160330, end: 20160405
  6. CELECOXIB CAP 200MG, 200 MG [Suspect]
     Active Substance: CELECOXIB
     Indication: PAIN
     Route: 048
     Dates: start: 20160405, end: 20160415
  7. CALCIUM [Concomitant]
     Active Substance: CALCIUM

REACTIONS (2)
  - Drug ineffective [None]
  - Pain [None]

NARRATIVE: CASE EVENT DATE: 20160415
